FAERS Safety Report 7604401-X (Version None)
Quarter: 2011Q2

REPORT INFORMATION
  Report Type: 
  Country: None (occurrence: None)
  Receive Date: 20110630
  Receipt Date: 20110615
  Transmission Date: 20111010
  Serious: Yes (Hospitalization, Other)
  Sender: FDA-Public Use
  Company Number: AUR-APL-2011-02715

PATIENT
  Age: 57 Year
  Sex: Male

DRUGS (12)
  1. SIMVASTATIN [Suspect]
     Indication: HYPERCHOLESTEROLAEMIA
     Dosage: (40 MG, 1 D), ORAL
     Route: 048
     Dates: start: 20060727, end: 20110522
  2. AMLODIPINE [Concomitant]
  3. RANEXA [Suspect]
     Indication: ANGINA PECTORIS
     Dosage: 750 MG (375 MG, 2 IN 1 D), ORAL; 1000 MG (500 MG, 2 IN 1 D), ORAL
     Route: 048
     Dates: start: 20110407, end: 20110505
  4. RANEXA [Suspect]
     Indication: ANGINA PECTORIS
     Dosage: 750 MG (375 MG, 2 IN 1 D), ORAL; 1000 MG (500 MG, 2 IN 1 D), ORAL
     Route: 048
     Dates: start: 20110506, end: 20110522
  5. CARVEDILOL [Concomitant]
  6. NAFTIDROFURYL OXALATE (NAFTIDROFURYL OXALATE) [Concomitant]
  7. NITROGLYCERIN [Concomitant]
  8. ISOSORBIDE MONONITRATE [Concomitant]
  9. TRIMETHOPRIM [Concomitant]
  10. NICORANDIL (NICORANDIL) [Concomitant]
  11. RAMIPRIL [Concomitant]
  12. ASPIRIN [Concomitant]

REACTIONS (7)
  - ANGINA PECTORIS [None]
  - ARTHRALGIA [None]
  - BLOOD UREA INCREASED [None]
  - MUSCULOSKELETAL PAIN [None]
  - DRUG INTERACTION [None]
  - RHABDOMYOLYSIS [None]
  - VOMITING [None]
